FAERS Safety Report 7542966-7 (Version None)
Quarter: 2011Q2

REPORT INFORMATION
  Report Type: 
  Country: None (occurrence: None)
  Receive Date: 20110613
  Receipt Date: 20110602
  Transmission Date: 20111010
  Serious: Yes (Other)
  Sender: FDA-Public Use
  Company Number: PHFR2011GB00807

PATIENT
  Sex: Female

DRUGS (6)
  1. FLUTICASONE PROPIONATE [Concomitant]
     Indication: ASTHMA
     Dosage: 250 UG/DAY
  2. DERMOL SOL [Concomitant]
     Indication: ECZEMA
     Dosage: UNK
     Route: 061
  3. ALBUTEROL [Concomitant]
     Indication: ASTHMA
     Dosage: 100 UG/DAY
  4. CLOZAPINE [Suspect]
     Indication: SCHIZOPHRENIA
     Dosage: 250 MG/DAY
     Route: 048
     Dates: start: 20081021
  5. SALMETEROL [Concomitant]
     Indication: ASTHMA
     Dosage: 25 UG/DAY
  6. HYOSCINE [Concomitant]
     Indication: SALIVARY HYPERSECRETION
     Dosage: 300 MG/DAY
     Route: 048

REACTIONS (3)
  - BLOOD IMMUNOGLOBULIN E INCREASED [None]
  - EOSINOPHIL COUNT INCREASED [None]
  - ECZEMA [None]
